FAERS Safety Report 15018207 (Version 2)
Quarter: 2018Q2

REPORT INFORMATION
  Report Type: Spontaneous
  Country: FR (occurrence: FR)
  Receive Date: 20180615
  Receipt Date: 20180620
  Transmission Date: 20180711
  Serious: Yes (Death, Other)
  Sender: FDA-Public Use
  Company Number: FR-TELIGENT, INC-IGIL20180334

PATIENT
  Age: 94 Year
  Sex: Female

DRUGS (1)
  1. CEFTAZIDIME. [Suspect]
     Active Substance: CEFTAZIDIME
     Indication: SUPERINFECTION
     Dosage: 1 G
     Route: 042
     Dates: start: 20140228, end: 20140309

REACTIONS (3)
  - Electrolyte imbalance [Fatal]
  - Arrhythmia [Fatal]
  - Pseudomembranous colitis [Recovering/Resolving]

NARRATIVE: CASE EVENT DATE: 20140312
